FAERS Safety Report 9277212 (Version 1)
Quarter: 2013Q2

REPORT INFORMATION
  Report Type: Spontaneous
  Country: US (occurrence: US)
  Receive Date: 20130508
  Receipt Date: 20130508
  Transmission Date: 20140414
  Serious: No
  Sender: FDA-Public Use
  Company Number: US-009507513-1305USA000767

PATIENT
  Age: 88 Year
  Sex: Female

DRUGS (1)
  1. NASONEX [Suspect]
     Dosage: UNK
     Route: 045
     Dates: start: 201204

REACTIONS (1)
  - Therapeutic response decreased [Unknown]
